FAERS Safety Report 6494785-0 (Version None)
Quarter: 2009Q4

REPORT INFORMATION
  Report Type: 
  Country: None (occurrence: None)
  Receive Date: 20091214
  Receipt Date: 20090325
  Transmission Date: 20100525
  Serious: No
  Sender: FDA-Public Use
  Company Number: US-BRISTOL-MYERS SQUIBB COMPANY-14559611

PATIENT
  Age: 68 Year
  Sex: Male
  Weight: 97 kg

DRUGS (10)
  1. ABILIFY [Suspect]
     Indication: DEPRESSION
     Dosage: DURATION OF THERAPY: 2 MONTHS AGO
     Dates: start: 20090101
  2. ABILIFY [Suspect]
     Indication: ANXIETY
     Dosage: DURATION OF THERAPY: 2 MONTHS AGO
     Dates: start: 20090101
  3. NEXIUM [Concomitant]
  4. LIPITOR [Concomitant]
  5. TRICOR [Concomitant]
  6. METFORMIN [Concomitant]
  7. DIVALPROEX SODIUM [Concomitant]
  8. VITAMIN D [Concomitant]
  9. XANAX [Concomitant]
  10. MICARDIS [Concomitant]

REACTIONS (5)
  - BALANCE DISORDER [None]
  - FATIGUE [None]
  - MUSCLE SPASMS [None]
  - SOMNOLENCE [None]
  - WEIGHT INCREASED [None]
